FAERS Safety Report 19727169 (Version 1)
Quarter: 2021Q3

REPORT INFORMATION
  Report Type: Other
  Country: CA (occurrence: CA)
  Receive Date: 20210820
  Receipt Date: 20210820
  Transmission Date: 20211014
  Serious: Yes (Death, Other)
  Sender: FDA-Public Use
  Company Number: CA-APOTEX-2021AP034433

PATIENT
  Age: 92 Year
  Sex: Female

DRUGS (2)
  1. FUROSEMIDE. [Suspect]
     Active Substance: FUROSEMIDE
     Indication: PRODUCT USED FOR UNKNOWN INDICATION
     Dosage: 200 MILLIGRAM, QD
     Route: 065
  2. POTASSIUM CHLORIDE. [Suspect]
     Active Substance: POTASSIUM CHLORIDE
     Indication: PRODUCT USED FOR UNKNOWN INDICATION
     Dosage: 40 MILLIGRAM, BID
     Route: 065

REACTIONS (16)
  - Hypokinesia [Fatal]
  - Prescribed overdose [Fatal]
  - Anuria [Fatal]
  - Atrial fibrillation [Fatal]
  - Dehydration [Fatal]
  - Product dose omission issue [Fatal]
  - Hypersomnia [Fatal]
  - Incorrect dose administered [Fatal]
  - Product prescribing error [Fatal]
  - Renal impairment [Fatal]
  - Drug monitoring procedure not performed [Fatal]
  - Acute kidney injury [Fatal]
  - Hypophagia [Fatal]
  - Delirium [Fatal]
  - Hyperkalaemia [Fatal]
  - Product prescribing issue [Fatal]
